FAERS Safety Report 5044862-6 (Version None)
Quarter: 2006Q2

REPORT INFORMATION
  Report Type: 
  Country: None (occurrence: None)
  Receive Date: 20060601
  Receipt Date: 20060207
  Transmission Date: 20061013
  Serious: No
  Sender: FDA-Public Use
  Company Number: 2006-BP-01463BP

PATIENT
  Sex: Male

DRUGS (1)
  1. SPIRIVA [Suspect]
     Dosage: (18 MCG),IH
     Dates: start: 20050101

REACTIONS (3)
  - CONSTIPATION [None]
  - HEART RATE IRREGULAR [None]
  - VISION BLURRED [None]
